FAERS Safety Report 6248870-9 (Version None)
Quarter: 2009Q2

REPORT INFORMATION
  Report Type: 
  Country: None (occurrence: None)
  Receive Date: 20090629
  Receipt Date: 20090618
  Transmission Date: 20091009
  Serious: Yes (Hospitalization)
  Sender: FDA-Public Use
  Company Number: PHHO2009FI06597

PATIENT
  Sex: Female
  Weight: 67 kg

DRUGS (3)
  1. RAD 666 RAD+TAB [Suspect]
     Indication: METASTATIC RENAL CELL CARCINOMA
     Dosage: 10 MG/DAY
     Route: 048
     Dates: start: 20090228, end: 20090526
  2. DIOVAN [Concomitant]
     Dosage: 320 MG, QD
     Route: 048
  3. PROPRAL [Concomitant]
     Dosage: 20 MG, QD
     Route: 048

REACTIONS (5)
  - C-REACTIVE PROTEIN INCREASED [None]
  - CHEST PAIN [None]
  - DYSPNOEA [None]
  - INFECTION [None]
  - OESOPHAGITIS [None]
